FAERS Safety Report 10968137 (Version 4)
Quarter: 2015Q2

REPORT INFORMATION
  Report Type: Spontaneous
  Country: US (occurrence: US)
  Receive Date: 20150330
  Receipt Date: 20150511
  Transmission Date: 20150821
  Serious: Yes (Hospitalization, Disabling, Other)
  Sender: FDA-Public Use
  Company Number: US-GLAXOSMITHKLINE-US2015040461

PATIENT
  Sex: Female

DRUGS (3)
  1. BENLYSTA [Suspect]
     Active Substance: BELIMUMAB
     Indication: SYSTEMIC LUPUS ERYTHEMATOSUS
     Dosage: 10 MG/KG, CYC
     Route: 042
     Dates: start: 201412
  2. PREDNISONE. [Suspect]
     Active Substance: PREDNISONE
  3. PLAQUENIL [Concomitant]
     Active Substance: HYDROXYCHLOROQUINE SULFATE

REACTIONS (8)
  - Abdominal pain [Recovering/Resolving]
  - Therapeutic response unexpected [Unknown]
  - Systemic lupus erythematosus [Recovering/Resolving]
  - Anaemia [Unknown]
  - Haemoglobin decreased [Recovering/Resolving]
  - Complement factor decreased [Recovering/Resolving]
  - White blood cell count decreased [Not Recovered/Not Resolved]
  - Ascites [Recovering/Resolving]

NARRATIVE: CASE EVENT DATE: 201503
